FAERS Safety Report 20101243 (Version 1)
Quarter: 2021Q4

REPORT INFORMATION
  Report Type: Spontaneous
  Country: US (occurrence: None)
  Receive Date: 20211122
  Receipt Date: 20211122
  Transmission Date: 20220303
  Serious: Yes (Hospitalization)
  Sender: FDA-Public Use
  Company Number: None

PATIENT
  Sex: Female

DRUGS (10)
  1. AMBRISENTAN [Suspect]
     Active Substance: AMBRISENTAN
     Route: 048
     Dates: start: 20201027
  2. calcium tab 600mg [Concomitant]
  3. HYDROXYCHLOROQUINE [Concomitant]
     Active Substance: HYDROXYCHLOROQUINE
  4. Lasix tab 20 mg [Concomitant]
  5. multivitamin tab [Concomitant]
  6. Pepcid chew complete [Concomitant]
  7. prednisone tab 10 mg [Concomitant]
  8. remodulin inj 5mg/ml [Concomitant]
  9. TADALAFIL [Concomitant]
     Active Substance: TADALAFIL
  10. TADALAFIL [Concomitant]
     Active Substance: TADALAFIL

REACTIONS (1)
  - Pulmonary arterial hypertension [None]
